FAERS Safety Report 19423273 (Version 1)
Quarter: 2021Q2

REPORT INFORMATION
  Report Type: Spontaneous
  Country: US (occurrence: US)
  Receive Date: 20210616
  Receipt Date: 20210616
  Transmission Date: 20210717
  Serious: Yes (Other)
  Sender: FDA-Public Use
  Company Number: US-PFIZER INC-2015475977

PATIENT
  Age: 66 Year
  Sex: Female

DRUGS (20)
  1. METOPROLOL SUCCINATE. [Concomitant]
     Active Substance: METOPROLOL SUCCINATE
     Dosage: 25 MG (EVERY DAY)
     Route: 048
  2. OMEPRAZOLE. [Concomitant]
     Active Substance: OMEPRAZOLE
     Dosage: 20 MG, 1X/DAY
     Route: 048
     Dates: start: 20151030
  3. FENOFIBRATE. [Concomitant]
     Active Substance: FENOFIBRATE
     Indication: HYPERLIPIDAEMIA
     Dosage: 48 MG (EVERY DAY)
     Route: 048
  4. FERROUS SULFATE. [Concomitant]
     Active Substance: FERROUS SULFATE
     Dosage: 1 DF, DAILY (TAKE ONE TABLET DAILY)
     Route: 048
  5. LYRICA [Suspect]
     Active Substance: PREGABALIN
     Indication: PARAESTHESIA
     Dosage: 100 MG, 3X/DAY
     Route: 048
  6. LYRICA [Suspect]
     Active Substance: PREGABALIN
     Dosage: 100 MG
  7. IMITREX [Concomitant]
     Active Substance: SUMATRIPTAN SUCCINATE
     Indication: MIGRAINE
     Dosage: 20 MG (1 SPRAY BY INTRANASAL ROUTE ONCE)
     Route: 045
     Dates: start: 20150928
  8. GEMFIBROZIL. [Concomitant]
     Active Substance: GEMFIBROZIL
     Dosage: 600 MG, 2X/DAY (30 MINUTES BEFORE MORNING AND EVENING MEAL)
     Route: 048
  9. DOCUSATE SODIUM. [Concomitant]
     Active Substance: DOCUSATE SODIUM
     Dosage: 250 MG, AS NEEDED (EVERY DAY AT BEDTIME)
     Route: 048
  10. PRAVASTATIN. [Concomitant]
     Active Substance: PRAVASTATIN
     Dosage: 40 MG (EVERY DAY)
     Route: 048
     Dates: start: 20150113
  11. PRAMIPEXOLE. [Concomitant]
     Active Substance: PRAMIPEXOLE
     Dosage: 0.5 MG, 3X/DAY
     Route: 048
  12. VITAMIN D3 [Concomitant]
     Active Substance: CHOLECALCIFEROL
     Dosage: 4000 IU
     Route: 048
  13. PAROXETINE. [Concomitant]
     Active Substance: PAROXETINE
     Indication: PERSISTENT DEPRESSIVE DISORDER
     Dosage: 40 MG, 1X/DAY
     Route: 048
     Dates: start: 20150930
  14. LOSARTAN. [Concomitant]
     Active Substance: LOSARTAN
     Indication: HYPERTENSION
     Dosage: 26 MG (EVERY DAY)
     Route: 048
  15. LYRICA [Suspect]
     Active Substance: PREGABALIN
     Dosage: 1 DF, 1X/DAY (1 CAPSULE A DAY)
  16. ZOSTAVAX [Concomitant]
     Active Substance: VARICELLA-ZOSTER VIRUS STRAIN OKA/MERCK LIVE ANTIGEN
     Dosage: 19400 IU, SINGLE
     Route: 030
     Dates: start: 20151105
  17. ASPIRIN. [Concomitant]
     Active Substance: ASPIRIN
     Dosage: 81 MG, DAILY
     Route: 048
  18. LYRICA [Suspect]
     Active Substance: PREGABALIN
     Indication: PAIN
     Dosage: 100 MG, 3X/DAY
     Route: 048
     Dates: start: 20151216
  19. NITROGLYCERINE [Concomitant]
     Active Substance: NITROGLYCERIN
     Indication: CHEST PAIN
     Dosage: 0.4 MG
     Route: 060
     Dates: start: 20130928
  20. NORTRIPTYLINE [Concomitant]
     Active Substance: NORTRIPTYLINE
     Dosage: 50 MG, 1X/DAY
     Route: 048
     Dates: start: 20151105

REACTIONS (2)
  - Intentional product use issue [Unknown]
  - Gait disturbance [Unknown]
